FAERS Safety Report 17597291 (Version 1)
Quarter: 2020Q1

REPORT INFORMATION
  Report Type: Spontaneous
  Country: GB (occurrence: GB)
  Receive Date: 20200330
  Receipt Date: 20200330
  Transmission Date: 20200409
  Serious: Yes (Hospitalization, Disabling)
  Sender: FDA-Public Use
  Company Number: GB-TEVA-2020-GB-1212332

PATIENT
  Age: 15 Year
  Sex: Female

DRUGS (1)
  1. MONTELUKAST [Suspect]
     Active Substance: MONTELUKAST SODIUM
     Indication: NASAL POLYPS
     Route: 048
     Dates: start: 2012, end: 2019

REACTIONS (3)
  - Depression suicidal [Not Recovered/Not Resolved]
  - Anxiety [Not Recovered/Not Resolved]
  - Bipolar disorder [Unknown]

NARRATIVE: CASE EVENT DATE: 2012
